FAERS Safety Report 8030973-X (Version None)
Quarter: 2012Q1

REPORT INFORMATION
  Report Type: 
  Country: None (occurrence: None)
  Receive Date: 20120109
  Receipt Date: 20111230
  Transmission Date: 20120608
  Serious: Yes (Hospitalization, Other)
  Sender: FDA-Public Use
  Company Number: FR-JNJFOC-20120102068

PATIENT
  Age: 31 Year
  Sex: Female

DRUGS (5)
  1. LAMICTAL [Concomitant]
     Indication: EPILEPSY
     Route: 048
     Dates: start: 20090601
  2. ZOLPIDEM [Concomitant]
     Indication: CERVICAL ROOT PAIN
     Route: 048
  3. TRAMADOL HCL [Suspect]
     Indication: PRODUCT USED FOR UNKNOWN INDICATION
     Route: 048
  4. URBANYL [Suspect]
     Indication: PRODUCT USED FOR UNKNOWN INDICATION
     Route: 048
     Dates: start: 20090101
  5. TRAMADOL HCL [Suspect]
     Indication: CERVICAL ROOT PAIN
     Route: 048

REACTIONS (3)
  - INTENTIONAL DRUG MISUSE [None]
  - CONVULSION [None]
  - PRESCRIPTION FORM TAMPERING [None]
